FAERS Safety Report 14407603 (Version 1)
Quarter: 2018Q1

REPORT INFORMATION
  Report Type: Spontaneous
  Country: US (occurrence: US)
  Receive Date: 20180115
  Receipt Date: 20180115
  Transmission Date: 20180509
  Serious: Yes (Other)
  Sender: FDA-Public Use
  Company Number: None

PATIENT
  Age: 34 Year
  Sex: Female
  Weight: 47 kg

DRUGS (1)
  1. SIMPLY ME BEAUTY BB CREAM (OCTINOXATE) [Suspect]
     Active Substance: OCTINOXATE
     Indication: THERAPEUTIC SKIN CARE TOPICAL
     Dosage: ?          QUANTITY:1 TIME;?
     Route: 061
     Dates: start: 20180114, end: 20180114

REACTIONS (2)
  - Skin exfoliation [None]
  - Burning sensation [None]

NARRATIVE: CASE EVENT DATE: 20180114
